FAERS Safety Report 17003833 (Version 1)
Quarter: 2019Q4

REPORT INFORMATION
  Report Type: Spontaneous
  Country: US (occurrence: US)
  Receive Date: 20191107
  Receipt Date: 20191107
  Transmission Date: 20200122
  Serious: Yes (Other)
  Sender: FDA-Public Use
  Company Number: US-BAYER-2019-197094

PATIENT

DRUGS (1)
  1. ASPIRIN (CARDIO) [Suspect]
     Active Substance: ASPIRIN
     Dosage: 1 DF, QD
     Route: 065

REACTIONS (2)
  - Myocardial infarction [Unknown]
  - Coronary artery bypass [None]

NARRATIVE: CASE EVENT DATE: 2006
